FAERS Safety Report 8926698 (Version 1)
Quarter: 2012Q4

REPORT INFORMATION
  Report Type: 
  Country: US (occurrence: US)
  Receive Date: 20121127
  Receipt Date: 20121127
  Transmission Date: 20130627
  Serious: Yes (Hospitalization, Other)
  Sender: FDA-Public Use
  Company Number: US-PFIZER INC-2012295313

PATIENT
  Age: 49 Year
  Sex: Female

DRUGS (10)
  1. NEURONTIN [Suspect]
     Dosage: 800 mg, UNK
  2. PRAVASTATIN [Concomitant]
     Dosage: 40 mg, 1x/day (1 tab at bedtime)
     Route: 048
  3. LORTAB 7.5/500 [Concomitant]
     Dosage: 500mg-7.5mg, every 8 hours (1 tab)
     Route: 048
  4. REQUIP [Concomitant]
     Dosage: 1 mg, 2x/day (2 mg tablet, orally 1/2 tab in p.m. and 1 tab q h.s.)
     Route: 048
  5. GABAPENTIN [Concomitant]
     Dosage: 800 mg, 3x/day (1 tab)
     Route: 048
  6. FUROSEMIDE [Concomitant]
     Dosage: 20 mg, 1x/day (1 tab)
     Route: 048
  7. LISINOPRIL [Concomitant]
     Dosage: 5 mg, 1x/day (1 tab)
     Route: 048
  8. METFORMIN [Concomitant]
     Dosage: 1000 mg, 2x/day (1 tab)
     Route: 048
  9. CITALOPRAM [Concomitant]
     Dosage: 40 mg, 1x/day (1 tab)
     Route: 048
  10. POTASSIUM CHLORIDE [Concomitant]
     Dosage: 10 mEq, 1x/day (1 cap)
     Route: 048

REACTIONS (5)
  - Lymphadenitis [Unknown]
  - Type 2 diabetes mellitus [Unknown]
  - Diabetic neuropathy [Unknown]
  - Depression [Unknown]
  - Hyperlipidaemia [Unknown]
